FAERS Safety Report 6998809-3 (Version None)
Quarter: 2010Q3

REPORT INFORMATION
  Report Type: 
  Country: None (occurrence: None)
  Receive Date: 20100920
  Receipt Date: 20100204
  Transmission Date: 20110219
  Serious: Yes (Hospitalization)
  Sender: FDA-Public Use
  Company Number: US-ASTRAZENECA-2009SE33734

PATIENT
  Age: 273 Month
  Sex: Female
  Weight: 122 kg

DRUGS (10)
  1. SEROQUEL [Suspect]
     Indication: SCHIZOPHRENIA
     Dosage: VARIOUS-USUALLY 600 MG TWICE DAY
     Route: 048
     Dates: start: 20030101, end: 20090101
  2. SEROQUEL [Suspect]
     Indication: BIPOLAR DISORDER
     Dosage: VARIOUS-USUALLY 600 MG TWICE DAY
     Route: 048
     Dates: start: 20030101, end: 20090101
  3. SEROQUEL [Suspect]
     Indication: DEPRESSION
     Dosage: VARIOUS-USUALLY 600 MG TWICE DAY
     Route: 048
     Dates: start: 20030101, end: 20090101
  4. HALDOL [Concomitant]
  5. RISPERDAL [Concomitant]
     Dates: start: 20050101
  6. THORAZINE [Concomitant]
  7. TRILAFON [Concomitant]
  8. CHLORPROMAZ [Concomitant]
  9. SIMVASTATIN [Concomitant]
     Indication: BLOOD CHOLESTEROL INCREASED
  10. SIMVASTATIN [Concomitant]
     Indication: HYPERLIPIDAEMIA

REACTIONS (3)
  - DIABETIC KETOACIDOSIS [None]
  - OBESITY [None]
  - TYPE 1 DIABETES MELLITUS [None]
